FAERS Safety Report 8532307-0 (Version None)
Quarter: 2012Q3

REPORT INFORMATION
  Report Type: 
  Country: None (occurrence: None)
  Receive Date: 20120724
  Receipt Date: 20120711
  Transmission Date: 20120928
  Serious: Yes (Other)
  Sender: FDA-Public Use
  Company Number: BR-AMGEN-BRASP2012044643

PATIENT
  Age: 41 Year
  Sex: Female
  Weight: 83 kg

DRUGS (4)
  1. ENBREL [Suspect]
     Indication: ARTHRITIS
  2. PROPRANOLOL [Concomitant]
     Indication: HYPERTENSION
     Dosage: 40 MG, 1X/DAY
  3. CLONAZEPAM [Concomitant]
     Indication: PANIC DISORDER
     Dosage: 4 MG, 1X/DAY
  4. ENBREL [Suspect]
     Indication: PSORIASIS
     Dosage: 50 MG, WEEKLY
     Route: 058
     Dates: start: 20120601, end: 20120601

REACTIONS (6)
  - OROPHARYNGEAL PAIN [None]
  - PUSTULAR PSORIASIS [None]
  - ARTHRALGIA [None]
  - PURULENT DISCHARGE [None]
  - PSORIASIS [None]
  - PNEUMONIA [None]
